FAERS Safety Report 5623922-2 (Version None)
Quarter: 2008Q1

REPORT INFORMATION
  Report Type: 
  Country: None (occurrence: None)
  Receive Date: 20080207
  Receipt Date: 20080122
  Transmission Date: 20080703
  Serious: Yes (Other)
  Sender: FDA-Public Use
  Company Number: S07-FRA-06440-01

PATIENT
  Age: 45 Year
  Sex: Male

DRUGS (3)
  1. CITALOPRAM HYDROBROMIDE [Suspect]
     Indication: DEPRESSION
     Dosage: 1 TABLET QD PO
     Route: 048
     Dates: start: 20061101
  2. THERALITE                  (LITHIUM CARBONATE) [Suspect]
     Indication: BIPOLAR I DISORDER
     Dosage: 400 MG BID PO
     Route: 048
     Dates: start: 20071005, end: 20071130
  3. PHENYLBUTAZONE [Concomitant]

REACTIONS (11)
  - ACCOMMODATION DISORDER [None]
  - ACNE [None]
  - ALOPECIA [None]
  - DIARRHOEA [None]
  - DIPLOPIA [None]
  - DIZZINESS [None]
  - DRUG INTERACTION [None]
  - MYOPIA [None]
  - PSORIASIS [None]
  - VISUAL ACUITY REDUCED [None]
  - WEIGHT INCREASED [None]
